FAERS Safety Report 5647195-X (Version None)
Quarter: 2008Q1

REPORT INFORMATION
  Report Type: 
  Country: None (occurrence: None)
  Receive Date: 20080228
  Receipt Date: 20080228
  Transmission Date: 20080703
  Serious: Yes (Hospitalization)
  Sender: FDA-Public Use
  Company Number: None

PATIENT
  Sex: Female
  Weight: 50.6 kg

DRUGS (2)
  1. DASATINIB 50MG BRISTOL-MYERS SQUIBB [Suspect]
     Indication: NEOPLASM
     Dosage: 70MG BID PO
     Route: 048
  2. DASATINIB 20MG BRISTOL-MYERS SQUIBB [Suspect]

REACTIONS (3)
  - ABDOMINAL PAIN [None]
  - PAIN [None]
  - TREATMENT NONCOMPLIANCE [None]
